FAERS Safety Report 22393358 (Version 1)
Quarter: 2023Q2

REPORT INFORMATION
  Report Type: Spontaneous
  Country: US (occurrence: None)
  Receive Date: 20230531
  Receipt Date: 20230531
  Transmission Date: 20230722
  Serious: No
  Sender: FDA-Public Use
  Company Number: None

PATIENT
  Age: 62 Year
  Sex: Female
  Weight: 112.5 kg

DRUGS (14)
  1. AUVELITY [Suspect]
     Active Substance: BUPROPION HYDROCHLORIDE\DEXTROMETHORPHAN HYDROBROMIDE
     Indication: Bipolar disorder
     Dosage: OTHER QUANTITY : 1 TABLET(S);?FREQUENCY : TWICE A DAY;?
     Route: 048
     Dates: start: 20230510, end: 20230531
  2. BUSPIRONE [Concomitant]
     Active Substance: BUSPIRONE HYDROCHLORIDE
  3. ADDERALL [Concomitant]
     Active Substance: AMPHETAMINE ASPARTATE\AMPHETAMINE SULFATE\DEXTROAMPHETAMINE SACCHARATE\DEXTROAMPHETAMINE SULFATE
  4. PROPRANOLOL [Concomitant]
     Active Substance: PROPRANOLOL HYDROCHLORIDE
  5. Estrogen cream [Concomitant]
  6. ALLEGRA [Concomitant]
     Active Substance: FEXOFENADINE HYDROCHLORIDE
  7. Imitrex Pen prn [Concomitant]
  8. Nurtec prn [Concomitant]
  9. Botox Injections every 3 months (Migraine) [Concomitant]
  10. METFORMIN [Concomitant]
     Active Substance: METFORMIN HYDROCHLORIDE
  11. MAGNESIUM [Concomitant]
     Active Substance: MAGNESIUM
  12. Vit B-12 [Concomitant]
  13. Vit B-2 [Concomitant]
  14. BIOTIN [Concomitant]
     Active Substance: BIOTIN

REACTIONS (1)
  - Anorgasmia [None]

NARRATIVE: CASE EVENT DATE: 20230510
